FAERS Safety Report 4785470-1 (Version None)
Quarter: 2005Q4

REPORT INFORMATION
  Report Type: 
  Country: None (occurrence: None)
  Receive Date: 20051003
  Receipt Date: 20050929
  Transmission Date: 20060501
  Serious: Yes (Life-Threatening)
  Sender: FDA-Public Use
  Company Number: 2005CG01620

PATIENT
  Age: 54 Year
  Sex: Male
  Weight: 80 kg

DRUGS (5)
  1. NEXIUM [Suspect]
     Route: 048
     Dates: end: 20050608
  2. PREVISCAN [Suspect]
     Route: 048
     Dates: end: 20050608
  3. CLAMOXYL [Suspect]
     Route: 042
     Dates: end: 20050608
  4. TRIATEC [Suspect]
     Route: 048
     Dates: end: 20050608
  5. DAFALGAN [Suspect]
     Route: 048
     Dates: end: 20050608

REACTIONS (1)
  - AGRANULOCYTOSIS [None]
